FAERS Safety Report 8267768-8 (Version None)
Quarter: 2012Q2

REPORT INFORMATION
  Report Type: 
  Country: None (occurrence: None)
  Receive Date: 20120409
  Receipt Date: 20120329
  Transmission Date: 20120825
  Serious: Yes (Hospitalization)
  Sender: FDA-Public Use
  Company Number: US-BAYER-2012-031746

PATIENT
  Age: 53 Year
  Sex: Female
  Weight: 91.2 kg

DRUGS (14)
  1. FENOFIBRIC ACID [Concomitant]
     Dosage: 135 MG, ONCE DAILY
     Route: 048
  2. METRONIDAZOLE [Concomitant]
     Dosage: 250 MG, TID
     Route: 048
  3. HORMONE REPLACEMENT THERAPY [Concomitant]
  4. YASMIN [Suspect]
  5. FISH OIL [Concomitant]
     Dosage: 500 MG, BID
     Route: 048
  6. DROSPIRENONE AND ETHINYL ESTRADIOL [Suspect]
  7. PERCOCET [Concomitant]
  8. BISOPROLOL FUMARATE AND HYDROCHLOROTHIAZIDE [Concomitant]
     Dosage: 10- 6.25 MG
     Route: 048
  9. CETIRIZINE [Concomitant]
     Dosage: 10 MG, QD
     Route: 048
  10. COLECALCIFEROL [Concomitant]
     Dosage: 1,000UNIT TWO TIMES DAILY
     Route: 048
  11. CALCIUM D [Concomitant]
     Route: 048
  12. MOMETASONE FUROATE [Concomitant]
     Dosage: 2 SPRAYS EACH NOSTRIL DAILY
  13. PSEUDOEPHEDRINE HCL [Concomitant]
     Dosage: 60MG EVERY 4 HOURS AS NEEDED
     Route: 048
  14. MS CONTIN [Concomitant]
     Indication: HEADACHE

REACTIONS (2)
  - THROMBOPHLEBITIS SUPERFICIAL [None]
  - INTRACRANIAL VENOUS SINUS THROMBOSIS [None]
